FAERS Safety Report 21274215 (Version 1)
Quarter: 2022Q3

REPORT INFORMATION
  Report Type: Spontaneous
  Country: CN (occurrence: CN)
  Receive Date: 20220831
  Receipt Date: 20220831
  Transmission Date: 20221027
  Serious: Yes (Hospitalization, Other)
  Sender: FDA-Public Use
  Company Number: CN-PFIZER INC-PV202200052052

PATIENT
  Age: 85 Year
  Sex: Female

DRUGS (2)
  1. METHYLPREDNISOLONE [Suspect]
     Active Substance: METHYLPREDNISOLONE
     Indication: Scleritis
     Dosage: 8 MG, 1X/DAY
     Route: 048
     Dates: start: 20220317, end: 20220728
  2. CELECOXIB [Suspect]
     Active Substance: CELECOXIB
     Indication: Scleritis
     Dosage: 0.2 G, 1X/DAY
     Route: 048
     Dates: start: 20220615, end: 20220818

REACTIONS (2)
  - Drug-induced liver injury [Recovering/Resolving]
  - Off label use [Unknown]

NARRATIVE: CASE EVENT DATE: 20220615
